FAERS Safety Report 9193178 (Version 3)
Quarter: 2013Q3

REPORT INFORMATION
  Report Type: Spontaneous
  Country: IE (occurrence: IE)
  Receive Date: 20130327
  Receipt Date: 20130712
  Transmission Date: 20140515
  Serious: Yes (Other)
  Sender: FDA-Public Use
  Company Number: IE-NOVOPROD-373911

PATIENT
  Sex: Male
  Weight: 30 kg

DRUGS (2)
  1. NORDITROPIN SIMPLEXX [Suspect]
     Indication: SMALL FOR DATES BABY
     Dosage: 0.8 MG, QD DAILY DOSE
     Route: 065
     Dates: start: 20081124, end: 20130315
  2. NORDITROPIN SIMPLEXX [Suspect]
     Dosage: 0.3 MG FOR 2 WEEKS
     Route: 065
     Dates: start: 20130703

REACTIONS (1)
  - Central nervous system lesion [Not Recovered/Not Resolved]
